FAERS Safety Report 5953133-2 (Version None)
Quarter: 2008Q4

REPORT INFORMATION
  Report Type: 
  Country: None (occurrence: None)
  Receive Date: 20081114
  Receipt Date: 20081106
  Transmission Date: 20090506
  Serious: Yes (Other)
  Sender: FDA-Public Use
  Company Number: ES-ABBOTT-08P-144-0485943-00

PATIENT
  Age: 57 Year
  Sex: Male

DRUGS (1)
  1. TEVETEN [Suspect]
     Indication: HYPERTENSION
     Route: 048
     Dates: start: 20080707, end: 20080912

REACTIONS (4)
  - ANGIOEDEMA [None]
  - DYSPHAGIA [None]
  - DYSPHONIA [None]
  - PALATAL OEDEMA [None]
